FAERS Safety Report 8920460 (Version 1)
Quarter: 2012Q4

REPORT INFORMATION
  Report Type: 
  Country: US (occurrence: US)
  Receive Date: 20121122
  Receipt Date: 20121122
  Transmission Date: 20130627
  Serious: Yes (Disabling)
  Sender: FDA-Public Use
  Company Number: US-JNJFOC-20121105339

PATIENT
  Sex: Male
  Weight: 135.17 kg

DRUGS (4)
  1. DURAGESIC [Suspect]
     Indication: HEAD INJURY
     Route: 062
  2. DURAGESIC [Suspect]
     Indication: MIGRAINE
     Route: 062
  3. DURAGESIC [Suspect]
     Indication: HEAD INJURY
     Route: 062
  4. DURAGESIC [Suspect]
     Indication: MIGRAINE
     Route: 062

REACTIONS (9)
  - Disability [Not Recovered/Not Resolved]
  - Wrong technique in drug usage process [Unknown]
  - Pain [Not Recovered/Not Resolved]
  - Hypokinesia [Not Recovered/Not Resolved]
  - Hyperhidrosis [Not Recovered/Not Resolved]
  - Product quality issue [Unknown]
  - Product quality issue [Not Recovered/Not Resolved]
  - Wrong technique in drug usage process [Unknown]
  - Off label use [Not Recovered/Not Resolved]
